FAERS Safety Report 11363248 (Version 1)
Quarter: 2015Q3

REPORT INFORMATION
  Report Type: Spontaneous
  Country: CH (occurrence: None)
  Receive Date: 20150807
  Receipt Date: 20150807
  Transmission Date: 20151125
  Serious: Yes (Hospitalization)
  Sender: FDA-Public Use
  Company Number: DEP_03308_2015

PATIENT
  Sex: Female

DRUGS (7)
  1. SAROTEN [Concomitant]
     Active Substance: AMITRIPTYLINE
  2. SIFROL [Concomitant]
     Active Substance: PRAMIPEXOLE
  3. PALEXIA [Suspect]
     Active Substance: TAPENTADOL HYDROCHLORIDE
     Indication: BACK PAIN
     Route: 048
  4. BUPRENORPHINE HYDROCHLORIDE. [Suspect]
     Active Substance: BUPRENORPHINE HYDROCHLORIDE
     Indication: BACK PAIN
     Route: 048
     Dates: start: 20150623, end: 20150623
  5. LYRICA [Concomitant]
     Active Substance: PREGABALIN
  6. PANTOPRAZOLE [Concomitant]
     Active Substance: PANTOPRAZOLE SODIUM
  7. CEFUROXIME. [Concomitant]
     Active Substance: CEFUROXIME

REACTIONS (14)
  - Fall [None]
  - Drug interaction [None]
  - Depressed level of consciousness [None]
  - Eye degenerative disorder [None]
  - Toxicity to various agents [None]
  - Cyanosis [None]
  - Ileus [None]
  - Hypoxia [None]
  - Coma scale abnormal [None]
  - Intestinal dilatation [None]
  - Faecaloma [None]
  - Back pain [None]
  - Condition aggravated [None]
  - Escherichia urinary tract infection [None]

NARRATIVE: CASE EVENT DATE: 201506
